FAERS Safety Report 9320596 (Version 2)
Quarter: 2013Q3

REPORT INFORMATION
  Report Type: Spontaneous
  Country: US (occurrence: US)
  Receive Date: 20130531
  Receipt Date: 20130718
  Transmission Date: 20140515
  Serious: No
  Sender: FDA-Public Use
  Company Number: US-B.I. PHARMACEUTICALS,INC./RIDGEFIELD-2013-BI-15201BP

PATIENT
  Age: 72 Year
  Sex: Female

DRUGS (6)
  1. SPIRIVA [Suspect]
     Dosage: 18 MCG
     Route: 055
     Dates: start: 201202
  2. VENTOLIN [Concomitant]
     Route: 055
  3. LORAZEPAM [Concomitant]
     Dosage: 2 MG
     Route: 048
  4. CLONIDINE [Concomitant]
     Dosage: 0.2 MG
     Route: 048
  5. ATACAND HCT [Concomitant]
     Dosage: STRENGTH: 32MG / 12.5 MG; DAILY DOSE: 32MG / 12.5 MG
     Route: 048
  6. ADVAIR [Concomitant]
     Dosage: STRENGTH: 250 / 50; DAILY DOSE: 500 / 100
     Route: 055

REACTIONS (2)
  - Migraine [Unknown]
  - Product quality issue [Unknown]
